FAERS Safety Report 7407157-9 (Version None)
Quarter: 2011Q2

REPORT INFORMATION
  Report Type: 
  Country: None (occurrence: None)
  Receive Date: 20110411
  Receipt Date: 20110328
  Transmission Date: 20111010
  Serious: No
  Sender: FDA-Public Use
  Company Number: US-B.I. PHARMACEUTICALS,INC./RIDGEFIELD-2011-BP-02382BP

PATIENT
  Sex: Male

DRUGS (15)
  1. SIMVASTATIN [Concomitant]
     Dosage: 20 MG
  2. BLINK EYE DROPS [Concomitant]
     Indication: DRY EYE
  3. PRADAXA [Suspect]
     Indication: ANTICOAGULANT THERAPY
     Dosage: 300 MG
     Route: 048
     Dates: start: 20101125
  4. FUROSEMIDE [Concomitant]
     Indication: DIURETIC THERAPY
     Dosage: 80 MG
  5. TROSPIUM CHLORIDE [Concomitant]
     Indication: URINARY RETENTION
  6. SPIRIVA [Concomitant]
     Indication: DYSPNOEA
     Dosage: 18 MCG
     Route: 055
     Dates: start: 20070101
  7. TROSPIUM CHLORIDE [Concomitant]
     Indication: POLLAKIURIA
     Dosage: 20 MG
  8. IRON [Concomitant]
     Indication: ANAEMIA
     Dosage: 65 MG
  9. FEXOFENADINE [Concomitant]
     Dosage: 180 MG
  10. OXYGEN [Concomitant]
     Indication: DYSPNOEA
     Route: 055
  11. COTRIM [Concomitant]
     Indication: PROSTATIC DISORDER
     Route: 048
     Dates: start: 19900101
  12. VITAMIN B-12 [Concomitant]
     Indication: ANAEMIA
     Dosage: 1000 MCG
  13. TROSPIUM CHLORIDE [Concomitant]
     Indication: PROSTATIC DISORDER
  14. SYMBICORT [Concomitant]
     Indication: DYSPNOEA
     Dosage: 160 MCG
     Route: 055
  15. FLUTCASON PROPIONATE [Concomitant]
     Dosage: 50 MCG

REACTIONS (1)
  - CONSTIPATION [None]
